FAERS Safety Report 15497716 (Version 1)
Quarter: 2018Q4

REPORT INFORMATION
  Report Type: Spontaneous
  Country: US (occurrence: US)
  Receive Date: 20181005
  Receipt Date: 20181005
  Transmission Date: 20190205
  Serious: No
  Sender: FDA-Public Use
  Company Number: None

PATIENT
  Age: 76 Year
  Sex: Female

DRUGS (4)
  1. METFORMIN [Concomitant]
     Active Substance: METFORMIN HYDROCHLORIDE
  2. METOPROLOL. [Concomitant]
     Active Substance: METOPROLOL
  3. AMLODIPINE [Concomitant]
     Active Substance: AMLODIPINE BESYLATE
  4. REPATHA [Suspect]
     Active Substance: EVOLOCUMAB
     Dates: start: 201802

REACTIONS (4)
  - Insurance issue [None]
  - Tremor [None]
  - Product dose omission [None]
  - Asthenia [None]

NARRATIVE: CASE EVENT DATE: 20180815
